FAERS Safety Report 8424117-X (Version None)
Quarter: 2012Q2

REPORT INFORMATION
  Report Type: 
  Country: None (occurrence: None)
  Receive Date: 20120608
  Receipt Date: 20110613
  Transmission Date: 20120825
  Serious: No
  Sender: FDA-Public Use
  Company Number: US-ASTRAZENECA-2011SE35912

PATIENT
  Age: 66 Year
  Sex: Female
  Weight: 80.7 kg

DRUGS (9)
  1. PREMARIN [Concomitant]
  2. ZIAC [Concomitant]
  3. ALPRAZOLAM [Concomitant]
  4. PULMICORT FLEXHALER [Suspect]
     Dosage: 2 PUFFS BID
     Route: 055
     Dates: start: 20110613
  5. FUROSEMIDE [Concomitant]
  6. PULMICORT FLEXHALER [Suspect]
     Indication: EMPHYSEMA
     Dosage: 2 PUFFS BID
     Route: 055
     Dates: start: 20110606, end: 20110607
  7. PULMICORT FLEXHALER [Suspect]
     Dosage: 1 PUFF BID
     Route: 055
     Dates: start: 20110608, end: 20110612
  8. COMBIVENT [Concomitant]
  9. SINGULAIR [Concomitant]

REACTIONS (1)
  - CHEST PAIN [None]
